FAERS Safety Report 24449421 (Version 1)
Quarter: 2024Q4

REPORT INFORMATION
  Report Type: Report from Study
  Country: US (occurrence: US)
  Receive Date: 20241017
  Receipt Date: 20241017
  Transmission Date: 20250115
  Serious: Yes (Other)
  Sender: AMNEAL
  Company Number: US-AMNEAL PHARMACEUTICALS-2024-AMRX-03737

PATIENT
  Sex: Male

DRUGS (2)
  1. CARBIDOPA\LEVODOPA [Suspect]
     Active Substance: CARBIDOPA\LEVODOPA
     Indication: Product used for unknown indication
     Dosage: (48.75/195 MG) 03 CAPSULES, 3X/DAY
     Route: 048
  2. CARBIDOPA\LEVODOPA [Suspect]
     Active Substance: CARBIDOPA\LEVODOPA
     Dosage: (48.75/195 MG) 03 TO 04 CAPSULES IN THE MORNING, AND 03 CAPSULES AT 02 PM AND 08 PM ON AN EMPTY STOM
     Route: 048
     Dates: start: 20240709

REACTIONS (2)
  - Macular degeneration [Unknown]
  - Product use issue [Unknown]
